FAERS Safety Report 18652534 (Version 1)
Quarter: 2020Q4

REPORT INFORMATION
  Report Type: Spontaneous
  Country: US (occurrence: US)
  Receive Date: 20201223
  Receipt Date: 20201223
  Transmission Date: 20210114
  Serious: Yes (Other)
  Sender: FDA-Public Use
  Company Number: US-009507513-2012USA008108

PATIENT
  Age: 67 Year
  Sex: Female

DRUGS (4)
  1. ALTEPLASE. [Suspect]
     Active Substance: ALTEPLASE
     Indication: ISCHAEMIC STROKE
     Dosage: 0.09 MG/KG (8.8 MG)
  2. IOHEXOL [Concomitant]
     Active Substance: IOHEXOL
     Dosage: 350 MG IODINE/ML , UNK
  3. PRINIVIL [Suspect]
     Active Substance: LISINOPRIL
     Dosage: UNK
  4. ALTEPLASE. [Suspect]
     Active Substance: ALTEPLASE
     Dosage: 0.81 MG/KG (79.1 MG)

REACTIONS (1)
  - Intestinal angioedema [Recovering/Resolving]
